FAERS Safety Report 5218427-7 (Version None)
Quarter: 2007Q1

REPORT INFORMATION
  Report Type: 
  Country: None (occurrence: None)
  Receive Date: 20070124
  Receipt Date: 20070112
  Transmission Date: 20070707
  Serious: Yes (Hospitalization)
  Sender: FDA-Public Use
  Company Number: FR-PFIZER INC-2007005477

PATIENT
  Age: 10 Year
  Sex: Male

DRUGS (3)
  1. HYDROXYZINE HYDROCHLORIDE (TABLET) [Suspect]
     Dosage: DAILY DOSE:5ML
     Route: 048
     Dates: start: 20061108, end: 20061108
  2. PARACETAMOL [Suspect]
     Route: 042
     Dates: start: 20061107, end: 20061114
  3. IMMUNE GLOBULIN INTRAVENOUS (HUMAN) [Concomitant]

REACTIONS (1)
  - TOXIC EPIDERMAL NECROLYSIS [None]
